FAERS Safety Report 14298905 (Version 1)
Quarter: 2017Q4

REPORT INFORMATION
  Report Type: Spontaneous
  Country: US (occurrence: US)
  Receive Date: 20171217
  Receipt Date: 20171217
  Transmission Date: 20180321
  Serious: Yes (Other)
  Sender: FDA-Public Use
  Company Number: None

PATIENT
  Sex: Female

DRUGS (1)
  1. CAPECITABINE 500MG [Suspect]
     Active Substance: CAPECITABINE
     Indication: BREAST CANCER FEMALE
     Dosage: 1500MG Q AM?1000MG Q PM ?ORAL (2500MG TOTAL)
     Route: 048
     Dates: start: 20171011

REACTIONS (4)
  - Pain in extremity [None]
  - Skin exfoliation [None]
  - Oropharyngeal pain [None]
  - Oral mucosal blistering [None]
